FAERS Safety Report 4934747-5 (Version None)
Quarter: 2006Q1

REPORT INFORMATION
  Report Type: 
  Country: None (occurrence: None)
  Receive Date: 20060307
  Receipt Date: 20050330
  Transmission Date: 20060701
  Serious: Yes (Other)
  Sender: FDA-Public Use
  Company Number: US-MERCK-0503USA05257

PATIENT
  Age: 49 Year
  Sex: Female
  Weight: 77 kg

DRUGS (4)
  1. VIOXX [Suspect]
     Indication: ARTHRITIS
     Route: 048
     Dates: start: 20001101, end: 20001201
  2. VIOXX [Suspect]
     Route: 048
     Dates: start: 20000501, end: 20001122
  3. VIOXX [Suspect]
     Route: 048
     Dates: start: 20001201, end: 20030101
  4. PARAFON FORTE DSC [Concomitant]
     Route: 065

REACTIONS (9)
  - BURSITIS [None]
  - CARPAL TUNNEL SYNDROME [None]
  - CEREBROVASCULAR ACCIDENT [None]
  - CHEST PAIN [None]
  - GASTRITIS [None]
  - ROAD TRAFFIC ACCIDENT [None]
  - SINUSITIS BACTERIAL [None]
  - TENDONITIS [None]
  - VIRAL RHINITIS [None]
